FAERS Safety Report 8347837-4 (Version None)
Quarter: 2012Q2

REPORT INFORMATION
  Report Type: 
  Country: None (occurrence: None)
  Receive Date: 20120509
  Receipt Date: 20120502
  Transmission Date: 20120825
  Serious: Yes (Other)
  Sender: FDA-Public Use
  Company Number: JP-GLAXOSMITHKLINE-B0797602A

PATIENT
  Sex: Male
  Weight: 39 kg

DRUGS (1)
  1. RELENZA [Suspect]
     Indication: INFLUENZA
     Dosage: 20MG PER DAY
     Route: 055
     Dates: start: 20120416, end: 20120417

REACTIONS (3)
  - DELIRIUM [None]
  - SLEEP TALKING [None]
  - VISION BLURRED [None]
